FAERS Safety Report 23134971 (Version 1)
Quarter: 2023Q4

REPORT INFORMATION
  Report Type: Spontaneous
  Country: US (occurrence: US)
  Receive Date: 20231101
  Receipt Date: 20231101
  Transmission Date: 20240109
  Serious: No
  Sender: FDA-Public Use
  Company Number: US-BRISTOL-MYERS SQUIBB COMPANY-2023-155661

PATIENT
  Age: 77 Year
  Sex: Female
  Weight: 54.43 kg

DRUGS (1)
  1. REVLIMID [Suspect]
     Active Substance: LENALIDOMIDE
     Indication: Plasma cell myeloma
     Dosage: 14D ON /7 DAYS OFF
     Route: 048

REACTIONS (2)
  - Cough [Recovering/Resolving]
  - Off label use [Unknown]
